FAERS Safety Report 12270920 (Version 2)
Quarter: 2016Q2

REPORT INFORMATION
  Report Type: Spontaneous
  Country: JP (occurrence: JP)
  Receive Date: 20160415
  Receipt Date: 20160427
  Transmission Date: 20160815
  Serious: Yes (Other)
  Sender: FDA-Public Use
  Company Number: JP-PFIZER INC-2016207039

PATIENT
  Age: 43 Year
  Sex: Male

DRUGS (1)
  1. RELPAX [Suspect]
     Active Substance: ELETRIPTAN HYDROBROMIDE
     Dosage: 20 MG ONCE O TWICE DAILY
     Route: 048
     Dates: start: 20160119

REACTIONS (1)
  - Prinzmetal angina [Not Recovered/Not Resolved]

NARRATIVE: CASE EVENT DATE: 20160301
